FAERS Safety Report 20317348 (Version 1)
Quarter: 2022Q1

REPORT INFORMATION
  Report Type: Spontaneous
  Country: US (occurrence: US)
  Receive Date: 20220110
  Receipt Date: 20220110
  Transmission Date: 20220423
  Serious: No
  Sender: FDA-Public Use
  Company Number: US-ORGANON-O2201USA000435

PATIENT
  Sex: Male

DRUGS (1)
  1. REMERON [Suspect]
     Active Substance: MIRTAZAPINE
     Dosage: UNK
     Route: 048
     Dates: start: 202112

REACTIONS (4)
  - Insomnia [Unknown]
  - Chest discomfort [Unknown]
  - Dysphagia [Unknown]
  - Product availability issue [Unknown]

NARRATIVE: CASE EVENT DATE: 20211201
